FAERS Safety Report 7078657-9 (Version None)
Quarter: 2010Q4

REPORT INFORMATION
  Report Type: 
  Country: None (occurrence: None)
  Receive Date: 20101102
  Receipt Date: 20101027
  Transmission Date: 20110411
  Serious: Yes (Death)
  Sender: FDA-Public Use
  Company Number: JP-ASTRAZENECA-2010SE51567

PATIENT
  Age: 72 Year
  Sex: Male

DRUGS (3)
  1. SEROQUEL [Suspect]
     Route: 048
  2. SEROQUEL [Suspect]
     Route: 048
     Dates: start: 20081111, end: 20081124
  3. SEROQUEL [Suspect]
     Route: 048
     Dates: start: 20081125

REACTIONS (1)
  - SUDDEN DEATH [None]
